FAERS Safety Report 17630243 (Version 1)
Quarter: 2020Q2

REPORT INFORMATION
  Report Type: Spontaneous
  Country: US (occurrence: US)
  Receive Date: 20200403
  Receipt Date: 20200403
  Transmission Date: 20200713
  Serious: No
  Sender: FDA-Public Use
  Company Number: None

PATIENT
  Age: 42 Year
  Sex: Female

DRUGS (1)
  1. CEFTRIAXONE SODIUM 2 GM HIKMA [Suspect]
     Active Substance: CEFTRIAXONE SODIUM
     Indication: CELLULITIS
     Route: 042
     Dates: start: 20200402

REACTIONS (3)
  - Dyspepsia [None]
  - Infusion related reaction [None]
  - Paraesthesia [None]

NARRATIVE: CASE EVENT DATE: 20200402
